FAERS Safety Report 11316616 (Version 3)
Quarter: 2019Q1

REPORT INFORMATION
  Report Type: Spontaneous
  Country: FR (occurrence: FR)
  Receive Date: 20150728
  Receipt Date: 20190109
  Transmission Date: 20190417
  Serious: Yes (Hospitalization, Other)
  Sender: FDA-Public Use
  Company Number: FR-OTSUKA-2015_001559AA

PATIENT
  Age: 34 Year
  Sex: Male
  Weight: 80 kg

DRUGS (10)
  1. ABILIFY [Suspect]
     Active Substance: ARIPIPRAZOLE
     Indication: PSYCHOTIC DISORDER
     Dosage: 15 MG, QD
     Route: 048
     Dates: start: 20150216, end: 20150218
  2. LOXAPINE. [Suspect]
     Active Substance: LOXAPINE
     Indication: AGITATION
     Dosage: 70 MG, QD
     Route: 048
     Dates: start: 20150215
  3. ALIMEMAZINE [Suspect]
     Active Substance: TRIMEPRAZINE
     Indication: INSOMNIA
     Dosage: 25 DROPS AT BEDTIME PER DAY
     Route: 048
  4. THIAMINE. [Suspect]
     Active Substance: THIAMINE
     Indication: VITAMIN B1 DEFICIENCY
     Dosage: 500 MG, QD
     Route: 048
     Dates: start: 20150215
  5. ABILIFY [Suspect]
     Active Substance: ARIPIPRAZOLE
     Dosage: 20 MG, QD
     Route: 048
     Dates: start: 20150219, end: 20150326
  6. SULFARLEM [Suspect]
     Active Substance: ANETHOLTRITHION
     Indication: APTYALISM
     Dosage: 100 MG, QD, TABLET
     Route: 048
  7. ABILIFY MAINTENA [Suspect]
     Active Substance: ARIPIPRAZOLE
     Indication: PSYCHOTIC DISORDER
     Dosage: 400 MG, QM
     Route: 030
     Dates: start: 20150313, end: 20150326
  8. BIPERIDEN [Suspect]
     Active Substance: BIPERIDEN
     Indication: MUSCLE CONTRACTURE
     Dosage: 4 MG, QD
     Route: 048
  9. DIAZEPAM. [Suspect]
     Active Substance: DIAZEPAM
     Indication: ANXIETY
     Dosage: 15 MG, QD
     Route: 048
     Dates: start: 20150215
  10. ZOPICLONE [Suspect]
     Active Substance: ZOPICLONE
     Indication: INSOMNIA
     Dosage: 7.5 MG, AT BED TIME
     Route: 048

REACTIONS (5)
  - Off label use [Unknown]
  - Pruritus [Recovered/Resolved]
  - Rash [Recovered/Resolved]
  - Erythrosis [Recovered/Resolved]
  - Blister [Recovered/Resolved]

NARRATIVE: CASE EVENT DATE: 20150320
